FAERS Safety Report 8043683-X (Version None)
Quarter: 2012Q1

REPORT INFORMATION
  Report Type: 
  Country: None (occurrence: None)
  Receive Date: 20120112
  Receipt Date: 20120105
  Transmission Date: 20120608
  Serious: Yes (Hospitalization, Other)
  Sender: FDA-Public Use
  Company Number: US-MERCK-1101USA02184

PATIENT
  Age: 60 Year
  Sex: Female
  Weight: 95 kg

DRUGS (6)
  1. BONIVA [Suspect]
     Indication: OSTEOPOROSIS
     Route: 048
     Dates: start: 20060801
  2. VITAMINS (UNSPECIFIED) [Concomitant]
     Route: 065
  3. FOSAMAX [Suspect]
     Indication: OSTEOPOROSIS
     Route: 048
     Dates: start: 20040201, end: 20060801
  4. CALCIUM (UNSPECIFIED) AND VITAMIN D (UNSPECIFIED) [Concomitant]
     Route: 065
  5. HORMONES (UNSPECIFIED) [Concomitant]
     Indication: HORMONE REPLACEMENT THERAPY
     Route: 048
     Dates: start: 20020101
  6. FORTEO [Suspect]
     Indication: OSTEOPOROSIS
     Route: 065

REACTIONS (77)
  - APPENDIX DISORDER [None]
  - DEHYDRATION [None]
  - TRANSFUSION REACTION [None]
  - COLITIS [None]
  - SCIATICA [None]
  - HYPERGLYCAEMIA [None]
  - DIZZINESS [None]
  - DIABETIC RETINOPATHY [None]
  - DIABETES MELLITUS INADEQUATE CONTROL [None]
  - HYPOKALAEMIA [None]
  - PYREXIA [None]
  - PAIN IN EXTREMITY [None]
  - RHINITIS ALLERGIC [None]
  - RADIUS FRACTURE [None]
  - ASTHMA [None]
  - MIGRAINE [None]
  - HYPERTENSIVE CRISIS [None]
  - VASCULAR HEADACHE [None]
  - PLEURAL EFFUSION [None]
  - CEREBROVASCULAR ACCIDENT [None]
  - DYSPNOEA [None]
  - DIVERTICULITIS [None]
  - TENDON DISORDER [None]
  - HYPOAESTHESIA [None]
  - SPINAL FRACTURE [None]
  - HIATUS HERNIA [None]
  - ARTHRALGIA [None]
  - CHRONIC SINUSITIS [None]
  - CARDIAC FAILURE CONGESTIVE [None]
  - CEREBRAL SMALL VESSEL ISCHAEMIC DISEASE [None]
  - CONVULSION [None]
  - SPINAL COLUMN STENOSIS [None]
  - NAUSEA [None]
  - ABDOMINAL DISTENSION [None]
  - TENDONITIS [None]
  - FOOT FRACTURE [None]
  - ASTHENIA [None]
  - MESENTERITIS [None]
  - DEPRESSION [None]
  - BALANCE DISORDER [None]
  - DEMENTIA [None]
  - ANGIOPATHY [None]
  - POLLAKIURIA [None]
  - SYNOVITIS [None]
  - ROTATOR CUFF SYNDROME [None]
  - PERIPHERAL VASCULAR DISORDER [None]
  - HYPERTENSIVE HEART DISEASE [None]
  - FALL [None]
  - ANKLE FRACTURE [None]
  - DEEP VEIN THROMBOSIS [None]
  - CALCIUM DEFICIENCY [None]
  - ANXIETY [None]
  - ANAEMIA OF CHRONIC DISEASE [None]
  - SPINAL COMPRESSION FRACTURE [None]
  - LOBAR PNEUMONIA [None]
  - URINARY TRACT INFECTION [None]
  - URINARY INCONTINENCE [None]
  - PANCREATITIS [None]
  - RADICULOPATHY [None]
  - HYPERLIPIDAEMIA [None]
  - FATIGUE [None]
  - MUSCLE STRAIN [None]
  - ABDOMINAL PAIN [None]
  - CHRONIC OBSTRUCTIVE PULMONARY DISEASE [None]
  - VOMITING [None]
  - CEREBRAL INFARCTION [None]
  - VITAMIN D DEFICIENCY [None]
  - NEUROPATHY PERIPHERAL [None]
  - INTERVERTEBRAL DISC DEGENERATION [None]
  - FEMUR FRACTURE [None]
  - OSTEOARTHRITIS [None]
  - HYPERCALCAEMIA [None]
  - PELVIC FRACTURE [None]
  - ANAEMIA POSTOPERATIVE [None]
  - DIVERTICULUM [None]
  - LYMPHADENITIS [None]
  - ANAEMIA VITAMIN B12 DEFICIENCY [None]
